FAERS Safety Report 6610957-6 (Version None)
Quarter: 2010Q1

REPORT INFORMATION
  Report Type: 
  Country: None (occurrence: None)
  Receive Date: 20100222
  Receipt Date: 20100208
  Transmission Date: 20100710
  Serious: Yes (Hospitalization)
  Sender: FDA-Public Use
  Company Number: ALA_00425_2010

PATIENT
  Age: 20 Year
  Sex: Male

DRUGS (1)
  1. OXYMETHOLONE (OXYMETHOLONE) [Suspect]
     Indication: APLASTIC ANAEMIA
     Dosage: (DF)

REACTIONS (12)
  - ABDOMINAL ABSCESS [None]
  - CONVULSION [None]
  - HEPATIC FAILURE [None]
  - HEPATIC HAEMORRHAGE [None]
  - HEPATIC NECROSIS [None]
  - HEPATIC RUPTURE [None]
  - PERITONEAL HAEMORRHAGE [None]
  - RESPIRATORY RATE INCREASED [None]
  - RETICULOENDOTHELIAL DYSFUNCTION [None]
  - SHOCK HAEMORRHAGIC [None]
  - TRAUMATIC LIVER INJURY [None]
  - VASCULAR PURPURA [None]
